FAERS Safety Report 19399923 (Version 1)
Quarter: 2021Q2

REPORT INFORMATION
  Report Type: Spontaneous
  Country: GB (occurrence: GB)
  Receive Date: 20210610
  Receipt Date: 20210610
  Transmission Date: 20210717
  Serious: Yes (Other)
  Sender: FDA-Public Use
  Company Number: GB-ORGANON-O2106GBR000891

PATIENT
  Sex: Female

DRUGS (1)
  1. NEXPLANON [Suspect]
     Active Substance: ETONOGESTREL
     Dosage: 1 IMPLANT ROD IN THE ARM
     Route: 059
     Dates: start: 20210607

REACTIONS (3)
  - Impatience [Unknown]
  - Movement disorder [Unknown]
  - Implant site pain [Unknown]

NARRATIVE: CASE EVENT DATE: 202106
